FAERS Safety Report 14210335 (Version 1)
Quarter: 2017Q4

REPORT INFORMATION
  Report Type: Spontaneous
  Country: JP (occurrence: JP)
  Receive Date: 20171121
  Receipt Date: 20171121
  Transmission Date: 20180321
  Serious: Yes (Death, Other)
  Sender: FDA-Public Use
  Company Number: JP-CELGENEUS-JPN-20171105801

PATIENT

DRUGS (6)
  1. GEMTUZUMAB OZOGAMICIN [Suspect]
     Active Substance: GEMTUZUMAB OZOGAMICIN
     Indication: MYELODYSPLASTIC SYNDROME
  2. AZACITIDINE. [Suspect]
     Active Substance: AZACITIDINE
     Indication: MYELODYSPLASTIC SYNDROME
  3. AZACITIDINE. [Suspect]
     Active Substance: AZACITIDINE
     Indication: HAEMATOLOGICAL MALIGNANCY
     Dosage: 30 MILLIGRAM/SQ. METER
     Route: 065
  4. AZACITIDINE. [Suspect]
     Active Substance: AZACITIDINE
     Indication: ACUTE LEUKAEMIA
  5. GEMTUZUMAB OZOGAMICIN [Suspect]
     Active Substance: GEMTUZUMAB OZOGAMICIN
     Indication: ACUTE LEUKAEMIA
  6. GEMTUZUMAB OZOGAMICIN [Suspect]
     Active Substance: GEMTUZUMAB OZOGAMICIN
     Indication: HAEMATOLOGICAL MALIGNANCY
     Dosage: 3 MILLIGRAM/SQ. METER
     Route: 065

REACTIONS (10)
  - Disease recurrence [Fatal]
  - Acute graft versus host disease [Unknown]
  - Thrombotic microangiopathy [Fatal]
  - Febrile neutropenia [Unknown]
  - Graft versus host disease [Unknown]
  - Infection [Fatal]
  - Pneumocystis jirovecii pneumonia [Fatal]
  - Thrombocytopenia [Unknown]
  - Neutropenia [Unknown]
  - Blood creatinine increased [Unknown]
